FAERS Safety Report 7282211-3 (Version None)
Quarter: 2011Q1

REPORT INFORMATION
  Report Type: 
  Country: None (occurrence: None)
  Receive Date: 20110209
  Receipt Date: 20110128
  Transmission Date: 20110831
  Serious: Yes (Other)
  Sender: FDA-Public Use
  Company Number: CZ-BIOGENIDEC-2011BI003442

PATIENT
  Age: 35 Year
  Sex: Male

DRUGS (3)
  1. CARBAMAZEPINE [Concomitant]
  2. AZATHIOPRINE [Concomitant]
  3. AVONEX [Suspect]
     Indication: PRODUCT USED FOR UNKNOWN INDICATION

REACTIONS (2)
  - DRUG INTERACTION [None]
  - BONE MARROW FAILURE [None]
